FAERS Safety Report 25954177 (Version 1)
Quarter: 2025Q4

REPORT INFORMATION
  Report Type: Spontaneous
  Country: US (occurrence: US)
  Receive Date: 20251023
  Receipt Date: 20251023
  Transmission Date: 20260118
  Serious: No
  Sender: IDORSIA PHARMACEUTICALS
  Company Number: US-IDORSIA-011905-2025-US

PATIENT
  Age: 35 Year
  Sex: Female

DRUGS (1)
  1. QUVIVIQ [Suspect]
     Active Substance: DARIDOREXANT
     Indication: Product used for unknown indication
     Dosage: 25 MG
     Route: 048
     Dates: start: 20250923

REACTIONS (4)
  - Psychomotor hyperactivity [Unknown]
  - Hyperhidrosis [Unknown]
  - Therapeutic product effect incomplete [Unknown]
  - Inappropriate schedule of product discontinuation [Unknown]

NARRATIVE: CASE EVENT DATE: 20250923
